FAERS Safety Report 5822240-7 (Version None)
Quarter: 2008Q3

REPORT INFORMATION
  Report Type: 
  Country: None (occurrence: None)
  Receive Date: 20080725
  Receipt Date: 20080501
  Transmission Date: 20090109
  Serious: No
  Sender: FDA-Public Use
  Company Number: US-AMGEN-KDL277239

PATIENT
  Sex: Male

DRUGS (1)
  1. EPOGEN [Suspect]
     Indication: DIALYSIS
     Dates: start: 20051201

REACTIONS (5)
  - BLOOD URINE PRESENT [None]
  - CATHETER RELATED COMPLICATION [None]
  - HAEMOGLOBIN DECREASED [None]
  - INFLUENZA [None]
  - PAIN [None]
